FAERS Safety Report 14705617 (Version 2)
Quarter: 2018Q2

REPORT INFORMATION
  Report Type: Report from Study
  Country: JP (occurrence: JP)
  Receive Date: 20180402
  Receipt Date: 20180425
  Transmission Date: 20180711
  Serious: Yes (Hospitalization)
  Sender: FDA-Public Use
  Company Number: JP-EISAI MEDICAL RESEARCH-EC-2018-037584

PATIENT
  Age: 68 Year
  Sex: Male

DRUGS (13)
  1. FLUVOXAMINE MALEATE. [Suspect]
     Active Substance: FLUVOXAMINE MALEATE
     Indication: DEPRESSION
     Route: 048
  2. BESACOLIN [Concomitant]
     Active Substance: BETHANECHOL CHLORIDE
  3. LULICON [Concomitant]
     Active Substance: LULICONAZOLE
  4. LITHIUM CARBONATE. [Suspect]
     Active Substance: LITHIUM CARBONATE
     Indication: BIPOLAR I DISORDER
     Route: 048
  5. URIEF [Concomitant]
     Active Substance: SILODOSIN
  6. PERAMPANEL [Suspect]
     Active Substance: PERAMPANEL
     Indication: AMYOTROPHIC LATERAL SCLEROSIS
     Route: 048
     Dates: start: 20180227, end: 20180305
  7. PERAMPANEL [Suspect]
     Active Substance: PERAMPANEL
     Route: 048
     Dates: start: 20180313, end: 20180322
  8. ZALUTIA [Concomitant]
     Active Substance: TADALAFIL
  9. ALPRAZOLAM. [Suspect]
     Active Substance: ALPRAZOLAM
     Indication: DEPRESSION
     Route: 048
  10. RILUZOLE. [Concomitant]
     Active Substance: RILUZOLE
  11. PERAMPANEL [Suspect]
     Active Substance: PERAMPANEL
     Route: 048
     Dates: start: 20180306, end: 20180312
  12. RADICUT [Concomitant]
     Active Substance: EDARAVONE
  13. ROSUVASTATIN. [Concomitant]
     Active Substance: ROSUVASTATIN

REACTIONS (1)
  - Anger [Recovered/Resolved]

NARRATIVE: CASE EVENT DATE: 20180318
